FAERS Safety Report 13692138 (Version 1)
Quarter: 2017Q2

REPORT INFORMATION
  Report Type: Spontaneous
  Country: US (occurrence: US)
  Receive Date: 20170627
  Receipt Date: 20170627
  Transmission Date: 20170830
  Serious: No
  Sender: FDA-Public Use
  Company Number: US-ASTRAZENECA-2015SE19010

PATIENT
  Age: 64 Year
  Sex: Male
  Weight: 81.6 kg

DRUGS (9)
  1. KOMBIGLYZE XR [Suspect]
     Active Substance: METFORMIN HYDROCHLORIDE\SAXAGLIPTIN HYDROCHLORIDE
     Indication: DIABETES MELLITUS
     Dosage: 20.0MG UNKNOWN
     Route: 048
     Dates: start: 2012, end: 20170611
  2. XIGDUO XR [Concomitant]
     Active Substance: DAPAGLIFLOZIN PROPANEDIOL\METFORMIN HYDROCHLORIDE
     Indication: DIABETES MELLITUS
     Route: 048
     Dates: start: 20170608
  3. BYDUREON [Suspect]
     Active Substance: EXENATIDE
     Indication: DIABETES MELLITUS
     Route: 058
  4. GLIPIZIDE. [Concomitant]
     Active Substance: GLIPIZIDE
     Indication: DIABETES MELLITUS
     Route: 065
     Dates: start: 2012
  5. ESOMEPRAZOLE MAGNESIUM. [Suspect]
     Active Substance: ESOMEPRAZOLE MAGNESIUM
     Indication: DYSPEPSIA
     Dosage: 40.0MG AS REQUIRED
     Route: 065
     Dates: start: 2016
  6. LISINOPRIL. [Suspect]
     Active Substance: LISINOPRIL
     Route: 048
     Dates: start: 2013
  7. BABY ASPIRIN [Concomitant]
     Active Substance: ASPIRIN
     Dosage: DAILY
     Route: 065
     Dates: start: 20170612
  8. ATORVASTATIN [Concomitant]
     Active Substance: ATORVASTATIN
     Indication: BLOOD CHOLESTEROL INCREASED
     Route: 065
     Dates: start: 2013
  9. BYDUREON [Suspect]
     Active Substance: EXENATIDE
     Indication: DIABETES MELLITUS
     Route: 058
     Dates: start: 2016

REACTIONS (4)
  - Injection site mass [Unknown]
  - Drug ineffective [Unknown]
  - Dyspepsia [Unknown]
  - Off label use [Unknown]

NARRATIVE: CASE EVENT DATE: 2012
